FAERS Safety Report 13484277 (Version 1)
Quarter: 2017Q2

REPORT INFORMATION
  Report Type: Spontaneous
  Country: GB (occurrence: GB)
  Receive Date: 20170425
  Receipt Date: 20170425
  Transmission Date: 20170830
  Serious: Yes (Other)
  Sender: FDA-Public Use
  Company Number: GB-CIPLA LTD.-2017GB07241

PATIENT

DRUGS (18)
  1. MONTELUKAST [Suspect]
     Active Substance: MONTELUKAST SODIUM
     Indication: ASTHMA
     Dosage: UNK
     Route: 065
     Dates: start: 20170317
  2. HYDROXYZINE [Concomitant]
     Active Substance: HYDROXYZINE HYDROCHLORIDE
     Dosage: 1 DF, QD, AT NIGHT
     Route: 065
     Dates: start: 20161003
  3. PROCHLORPERAZINE. [Concomitant]
     Active Substance: PROCHLORPERAZINE
     Dosage: 1 DF, TID
     Route: 065
     Dates: start: 20170208, end: 20170222
  4. PROTOPIC [Concomitant]
     Active Substance: TACROLIMUS
     Dosage: 1 DF, APPLY THINLY ONCE A DAY AND REDUCE TO AS REQUIRED
     Route: 065
     Dates: start: 20161101
  5. DERMOVATE [Concomitant]
     Active Substance: CLOBETASOL
     Dosage: 1 DF, QD, APPLY TO AFFECTED AREAS ON TRUNK
     Route: 065
     Dates: start: 20161003
  6. SYSTANE (HYPROMELLOSE 2910 (4000 MPA.S)) [Concomitant]
     Active Substance: HYPROMELLOSE 2910 (4000 MPA.S)
     Dosage: UNK, USE AS DIRECTED
     Route: 065
     Dates: start: 20161101
  7. COCODAMOL [Concomitant]
     Active Substance: ACETAMINOPHEN\CODEINE PHOSPHATE
     Dosage: TAKE ONE OR TWO TABLETS FOUR TIMES A DAY, AS NECESSARY
     Route: 065
     Dates: start: 20170323, end: 20170324
  8. HYDROMOL EMOLLIENT [Concomitant]
     Dosage: 1 DF, QD, USE AS DIRECTED TO WHOLE BODY AT NIGHT
     Route: 065
  9. DIAZEPAM. [Concomitant]
     Active Substance: DIAZEPAM
     Dosage: 1 DF, BID
     Route: 065
     Dates: start: 20170313, end: 20170327
  10. FERROUS SULFATE. [Concomitant]
     Active Substance: FERROUS SULFATE
     Dosage: 1 DF, BID
     Route: 065
     Dates: start: 20170208
  11. IBUPROFEN. [Concomitant]
     Active Substance: IBUPROFEN
     Dosage: 1 DF, TID
     Route: 065
     Dates: start: 20170106, end: 20170203
  12. VENTOLIN [Concomitant]
     Active Substance: ALBUTEROL SULFATE
     Dosage: 1 DF
     Route: 055
     Dates: start: 20160916
  13. ZOPICLONE [Concomitant]
     Active Substance: ZOPICLONE
     Dosage: 1 DF, QD, AT NIGHT.
     Route: 065
     Dates: start: 20170323
  14. DERMOL [Concomitant]
     Active Substance: BENZALKONIUM CHLORIDE\CHLORHEXIDINE HYDROCHLORIDE\ISOPROPYL MYRISTATE\PARAFFIN
     Dosage: UNK, USE AS DIRECTED
     Route: 065
     Dates: start: 20160916
  15. DOUBLEBASE [Concomitant]
     Active Substance: ISOPROPYL MYRISTATE\PARAFFIN
     Dosage: 1 DF, BID, TO WHOLE BODY
     Route: 065
     Dates: start: 20161003
  16. SYMBICORT [Concomitant]
     Active Substance: BUDESONIDE\FORMOTEROL FUMARATE DIHYDRATE
     Dosage: 1 DF, BID
     Route: 055
     Dates: start: 20160916
  17. HYDROCORTISONE. [Concomitant]
     Active Substance: HYDROCORTISONE
     Dosage: 1 DF, BID, APPLY
     Route: 065
     Dates: start: 20170316, end: 20170326
  18. TACROLIMUS. [Concomitant]
     Active Substance: TACROLIMUS
     Indication: ECZEMA
     Dosage: 1 DF, QD, APPLY TO FACE
     Route: 065
     Dates: start: 20161003

REACTIONS (2)
  - Eczema [Unknown]
  - Rash [Unknown]

NARRATIVE: CASE EVENT DATE: 20170326
